FAERS Safety Report 8379395-2 (Version None)
Quarter: 2012Q2

REPORT INFORMATION
  Report Type: 
  Country: None (occurrence: None)
  Receive Date: 20120523
  Receipt Date: 20120515
  Transmission Date: 20120825
  Serious: Yes (Hospitalization, Other)
  Sender: FDA-Public Use
  Company Number: JP-B.I. PHARMACEUTICALS,INC./RIDGEFIELD-2012-EU-01784GD

PATIENT
  Sex: Male
  Weight: 72 kg

DRUGS (6)
  1. DABIGATRAN [Suspect]
     Indication: CEREBROVASCULAR ACCIDENT PROPHYLAXIS
     Dosage: 220 MG
     Route: 048
     Dates: start: 20110809, end: 20111026
  2. RABEPRAZOLE SODIUM [Concomitant]
     Indication: GASTRIC ULCER
     Dosage: 10 MG
     Route: 048
     Dates: start: 20100729
  3. DABIGATRAN [Suspect]
     Dosage: 300 MG
     Route: 048
  4. ANTIBIOTICS [Suspect]
     Indication: ATYPICAL MYCOBACTERIAL INFECTION
     Dosage: 450 MG
     Route: 048
     Dates: start: 20100729, end: 20110801
  5. ETHAMBUTOL HYDROCHLORIDE [Concomitant]
     Indication: ATYPICAL MYCOBACTERIAL INFECTION
     Dosage: 750 MG
     Route: 048
     Dates: start: 20100729
  6. CLARITHROMYCIN [Concomitant]
     Indication: ATYPICAL MYCOBACTERIAL INFECTION
     Dosage: 800 MG
     Route: 048
     Dates: start: 20100729

REACTIONS (4)
  - CEREBRAL INFARCTION [None]
  - DRUG INEFFECTIVE [None]
  - DRUG INTERACTION [None]
  - HAEMORRHAGIC CEREBRAL INFARCTION [None]
